FAERS Safety Report 6127854-5 (Version None)
Quarter: 2009Q1

REPORT INFORMATION
  Report Type: 
  Country: None (occurrence: None)
  Receive Date: 20090323
  Receipt Date: 20090309
  Transmission Date: 20090719
  Serious: Yes (Other)
  Sender: FDA-Public Use
  Company Number: DE-ELI_LILLY_AND_COMPANY-DE200903002195

PATIENT
  Sex: Female
  Weight: 84 kg

DRUGS (1)
  1. ARICLAIM [Suspect]
     Indication: DIABETIC NEUROPATHY
     Dosage: 15 MG, DAILY (1/D)
     Route: 048
     Dates: start: 20081219, end: 20081223

REACTIONS (7)
  - ANOREXIA [None]
  - BLOOD GLUCOSE INCREASED [None]
  - DEPRESSED MOOD [None]
  - DIZZINESS [None]
  - PRURITUS [None]
  - SUICIDAL IDEATION [None]
  - TREMOR [None]
